FAERS Safety Report 12761966 (Version 1)
Quarter: 2016Q3

REPORT INFORMATION
  Report Type: Spontaneous
  Country: GB (occurrence: GB)
  Receive Date: 20160920
  Receipt Date: 20160920
  Transmission Date: 20161109
  Serious: Yes (Life-Threatening, Hospitalization, Other)
  Sender: FDA-Public Use
  Company Number: GB-AUROBINDO-AUR-APL-2016-11470

PATIENT
  Age: 50 Year
  Sex: Male

DRUGS (6)
  1. MONOPARIN [Suspect]
     Active Substance: HEPARIN SODIUM
     Indication: PRODUCT USED FOR UNKNOWN INDICATION
     Dosage: 5000 IU/0.2ML
     Route: 058
     Dates: start: 20160512, end: 20160615
  2. APIXABAN [Suspect]
     Active Substance: APIXABAN
     Indication: PRODUCT USED FOR UNKNOWN INDICATION
     Route: 065
  3. HEPARIN [Suspect]
     Active Substance: HEPARIN SODIUM
     Indication: PRODUCT USED FOR UNKNOWN INDICATION
     Route: 042
     Dates: start: 20160512
  4. AMIODARONE [Suspect]
     Active Substance: AMIODARONE
     Indication: PRODUCT USED FOR UNKNOWN INDICATION
     Route: 065
  5. DIAZEPAM. [Suspect]
     Active Substance: DIAZEPAM
     Indication: PRODUCT USED FOR UNKNOWN INDICATION
     Route: 065
  6. BISOPROLOL [Suspect]
     Active Substance: BISOPROLOL
     Indication: PRODUCT USED FOR UNKNOWN INDICATION
     Route: 065

REACTIONS (23)
  - Productive cough [Unknown]
  - Cardiac failure [Unknown]
  - Hepatic failure [Unknown]
  - General physical condition abnormal [Unknown]
  - Septic rash [Unknown]
  - Internal haemorrhage [Recovered/Resolved]
  - Complication associated with device [Unknown]
  - Discomfort [Not Recovered/Not Resolved]
  - Pyrexia [Unknown]
  - Asthenia [Unknown]
  - Septic shock [Unknown]
  - Renal failure [Unknown]
  - Thrombocytopenia [Unknown]
  - Insomnia [Unknown]
  - Back pain [Unknown]
  - Jaundice [Unknown]
  - Muscle haemorrhage [Unknown]
  - Atrial fibrillation [Unknown]
  - Monoplegia [Unknown]
  - Poor peripheral circulation [Unknown]
  - Sensory disturbance [Unknown]
  - Malaise [Unknown]
  - Heart rate abnormal [Unknown]

NARRATIVE: CASE EVENT DATE: 20160512
